FAERS Safety Report 11933522 (Version 1)
Quarter: 2016Q1

REPORT INFORMATION
  Report Type: Spontaneous
  Country: US (occurrence: None)
  Receive Date: 20160120
  Receipt Date: 20160120
  Transmission Date: 20160526
  Serious: No
  Sender: FDA-Public Use
  Company Number: None

PATIENT
  Sex: Female
  Weight: 68.04 kg

DRUGS (2)
  1. BUPE/NALOXONE COMBO TABLET 8/2 [Suspect]
     Active Substance: BUPRENORPHINE\NALOXONE
     Dosage: 8/2 ..X7 DAILY SL
     Route: 060
  2. SUBOXONE [Suspect]
     Active Substance: BUPRENORPHINE HYDROCHLORIDE\NALOXONE HYDROCHLORIDE
     Indication: DRUG DEPENDENCE
     Dosage: 8/2 .. X 2 DAILY SL
     Route: 060

REACTIONS (2)
  - Administration site inflammation [None]
  - Administration site hypertrophy [None]
